FAERS Safety Report 4323485-8 (Version None)
Quarter: 2004Q1

REPORT INFORMATION
  Report Type: 
  Country: None (occurrence: None)
  Receive Date: 20040325
  Receipt Date: 20031212
  Transmission Date: 20041129
  Serious: Yes (Other)
  Sender: FDA-Public Use
  Company Number: PHNU2003DE04392

PATIENT
  Sex: Male
  Weight: 86 kg

DRUGS (5)
  1. ZOMETA [Suspect]
     Indication: MULTIPLE MYELOMA
     Dosage: 4 MG, QMO
     Route: 042
     Dates: start: 20030501, end: 20031201
  2. BENDAMUSTINE [Concomitant]
     Indication: CHEMOTHERAPY
     Route: 065
     Dates: start: 20030601, end: 20031001
  3. PREDNISOLONE [Concomitant]
     Indication: CHEMOTHERAPY
     Route: 065
     Dates: start: 20030601, end: 20031001
  4. DURAGESIC [Concomitant]
     Route: 062
  5. AREDIA [Suspect]
     Indication: MULTIPLE MYELOMA

REACTIONS (3)
  - BLOOD CREATININE INCREASED [None]
  - RENAL FAILURE CHRONIC [None]
  - RENAL TUBULAR NECROSIS [None]
